FAERS Safety Report 6642712-5 (Version None)
Quarter: 2010Q1

REPORT INFORMATION
  Report Type: 
  Country: None (occurrence: None)
  Receive Date: 20100319
  Receipt Date: 20090728
  Transmission Date: 20100710
  Serious: Yes (Hospitalization)
  Sender: FDA-Public Use
  Company Number: AU-SANOFI-AVENTIS-F01200900624

PATIENT
  Age: 72 Year
  Sex: Female
  Weight: 59.3 kg

DRUGS (7)
  1. OXALIPLATIN [Suspect]
     Dosage: UNIT DOSE: 85 MG/M2
     Route: 041
     Dates: start: 20090616, end: 20090616
  2. AFLIBERCEPT [Suspect]
     Dosage: UNIT DOSE: 4 MG/KG
     Route: 041
     Dates: start: 20090616, end: 20090616
  3. FLUOROURACIL [Suspect]
     Dosage: UNIT DOSE: 2800 MG/M2
     Route: 042
     Dates: start: 20090616
  4. LEUCOVORIN CALCIUM [Suspect]
     Dosage: UNIT DOSE: 350 MG/M2
     Route: 041
     Dates: start: 20090616, end: 20090616
  5. PERINDOPRIL [Concomitant]
  6. DEXAMETHASONE [Concomitant]
  7. KYTRIL [Concomitant]

REACTIONS (1)
  - REVERSIBLE POSTERIOR LEUKOENCEPHALOPATHY SYNDROME [None]
